FAERS Safety Report 6409132-X (Version None)
Quarter: 2009Q4

REPORT INFORMATION
  Report Type: 
  Country: None (occurrence: None)
  Receive Date: 20091021
  Receipt Date: 20091008
  Transmission Date: 20100525
  Serious: Yes (Other)
  Sender: FDA-Public Use
  Company Number: PHHY2009GB34676

PATIENT
  Sex: Male
  Weight: 94.7 kg

DRUGS (2)
  1. CLOZARIL [Suspect]
     Indication: SCHIZOPHRENIA
     Dosage: UNK
     Route: 048
     Dates: start: 20090327
  2. CLOZARIL [Suspect]
     Dosage: 250 MG/DAY
     Route: 048
     Dates: start: 20090817

REACTIONS (4)
  - NEUTROPHIL COUNT DECREASED [None]
  - OROPHARYNGEAL PAIN [None]
  - SURGERY [None]
  - WHITE BLOOD CELL COUNT DECREASED [None]
